FAERS Safety Report 17676841 (Version 1)
Quarter: 2020Q2

REPORT INFORMATION
  Report Type: Spontaneous
  Country: US (occurrence: US)
  Receive Date: 20200416
  Receipt Date: 20200416
  Transmission Date: 20200714
  Serious: No
  Sender: FDA-Public Use
  Company Number: US-ARRAY-2020-07739

PATIENT

DRUGS (1)
  1. BRAFTOVI [Suspect]
     Active Substance: ENCORAFENIB
     Indication: COLON CANCER
     Dosage: 300 MG DAILY
     Route: 048

REACTIONS (4)
  - Rash [Unknown]
  - Taste disorder [Unknown]
  - Product use in unapproved indication [Unknown]
  - Fatigue [Unknown]
